FAERS Safety Report 9369284 (Version 2)
Quarter: 2013Q3

REPORT INFORMATION
  Report Type: Report from Study
  Country: JP (occurrence: JP)
  Receive Date: 20130626
  Receipt Date: 20130805
  Transmission Date: 20140515
  Serious: Yes (Disabling)
  Sender: FDA-Public Use
  Company Number: JP-ROCHE-1241031

PATIENT
  Age: 58 Year
  Sex: Female

DRUGS (4)
  1. METHOXY POLYETHYLENE GLYCOL-EPOETIN BETA [Suspect]
     Indication: NEPHROGENIC ANAEMIA
     Route: 058
     Dates: start: 20130221, end: 20130509
  2. ATELEC [Concomitant]
     Route: 048
  3. ADALAT CR [Concomitant]
     Route: 048
  4. ONON [Concomitant]
     Route: 048

REACTIONS (2)
  - Haemodialysis [Not Recovered/Not Resolved]
  - Hypertension [Unknown]
